FAERS Safety Report 6088257-5 (Version None)
Quarter: 2009Q1

REPORT INFORMATION
  Report Type: 
  Country: None (occurrence: None)
  Receive Date: 20090224
  Receipt Date: 20090123
  Transmission Date: 20090719
  Serious: No
  Sender: FDA-Public Use
  Company Number: US-BAYER-200910264BCC

PATIENT
  Age: 72 Year
  Sex: Female
  Weight: 76 kg

DRUGS (6)
  1. ALEVE (CAPLET) [Suspect]
     Indication: ARTHRALGIA
     Dosage: AS USED: 220 MG  UNIT DOSE: 220 MG
     Route: 048
     Dates: start: 20081101
  2. CALTRATE + D [Concomitant]
  3. KROGER MULTIVITAMINS [Concomitant]
  4. ZOMETA [Concomitant]
  5. FASLODEX [Concomitant]
  6. OXYGEN [Concomitant]

REACTIONS (1)
  - DYSGEUSIA [None]
